FAERS Safety Report 9424473 (Version 1)
Quarter: 2013Q4

REPORT INFORMATION
  Report Type: Spontaneous
  Country: US (occurrence: None)
  Receive Date: 20130726
  Receipt Date: 20130726
  Transmission Date: 20140711
  Serious: Yes (Hospitalization)
  Sender: FDA-Public Use
  Company Number: None

PATIENT
  Age: 78 Year
  Sex: Male

DRUGS (12)
  1. VITAMIN C [Suspect]
     Indication: HEPATOCELLULAR CARCINOMA
     Dosage: 75G/INFUSION
     Dates: start: 20130528
  2. SORAFENIB [Concomitant]
  3. PLAVIX [Concomitant]
  4. LASIX [Concomitant]
  5. DIOVAN [Concomitant]
  6. INSULIN [Concomitant]
  7. NEXIUM [Concomitant]
  8. OXYCODONE [Concomitant]
  9. ZOMETA [Concomitant]
  10. IMMODIUM [Concomitant]
  11. CELEBREX [Concomitant]
  12. METOPROLOL [Concomitant]

REACTIONS (4)
  - Asthenia [None]
  - Diarrhoea [None]
  - Fatigue [None]
  - Dehydration [None]
